FAERS Safety Report 17439261 (Version 2)
Quarter: 2020Q1

REPORT INFORMATION
  Report Type: Spontaneous
  Country: US (occurrence: US)
  Receive Date: 20200220
  Receipt Date: 20200319
  Transmission Date: 20200409
  Serious: Yes (Other)
  Sender: FDA-Public Use
  Company Number: US-GLAXOSMITHKLINE-US2020026903

PATIENT
  Age: 61 Year
  Sex: Female

DRUGS (2)
  1. BENLYSTA [Suspect]
     Active Substance: BELIMUMAB
     Indication: PRODUCT USED FOR UNKNOWN INDICATION
     Dosage: UNK UNK, CYC
     Route: 042
     Dates: start: 20190103
  2. PREDNISONE (ORAL) [Concomitant]
     Active Substance: PREDNISONE
     Indication: PRODUCT USED FOR UNKNOWN INDICATION
     Dosage: UNK
     Route: 048

REACTIONS (12)
  - Retinal haemorrhage [Unknown]
  - Blindness [Recovered/Resolved]
  - Weight increased [Unknown]
  - Arthralgia [Unknown]
  - Retinal vein occlusion [Recovered/Resolved]
  - Pain in extremity [Unknown]
  - Vision blurred [Unknown]
  - Back pain [Unknown]
  - Condition aggravated [Unknown]
  - Fall [Unknown]
  - Gait disturbance [Unknown]
  - Joint swelling [Unknown]

NARRATIVE: CASE EVENT DATE: 201901
